FAERS Safety Report 8106867 (Version 3)
Quarter: 2012Q4

REPORT INFORMATION
  Report Type: 
  Country: US (occurrence: US)
  Receive Date: 20110825
  Receipt Date: 20121129
  Transmission Date: 20130627
  Serious: Yes (Hospitalization, Other)
  Sender: FDA-Public Use
  Company Number: US-BAYER-2011-074997

PATIENT
  Age: 32 Year
  Sex: Female

DRUGS (5)
  1. YAZ [Suspect]
     Indication: ACNE
     Dosage: UNK
     Dates: start: 200610, end: 200911
  2. YAZ [Suspect]
     Indication: PREMENSTRUAL SYNDROME
  3. YAZ [Suspect]
     Indication: IRREGULAR PERIODS
  4. LEVOTHYROXINE [Concomitant]
     Dosage: 75 mcg/24hr, UNK
     Route: 048
  5. LEXAPRO [Concomitant]
     Dosage: 20 mg, daily
     Route: 048

REACTIONS (4)
  - Cerebrovascular accident [None]
  - Injury [None]
  - Thrombosis [None]
  - Off label use [None]
